FAERS Safety Report 5822539-4 (Version None)
Quarter: 2008Q3

REPORT INFORMATION
  Report Type: 
  Country: None (occurrence: None)
  Receive Date: 20080722
  Receipt Date: 20080715
  Transmission Date: 20090109
  Serious: Yes (Hospitalization)
  Sender: FDA-Public Use
  Company Number: 2008SP013508

PATIENT
  Age: 64 Year
  Sex: Female
  Weight: 51 kg

DRUGS (5)
  1. PEGINTERFERON ALFA-2B (S-P) (PEGINTERFERON ALDA-2B) [Suspect]
     Indication: HEPATITIS C
     Dosage: 0.5 MCG/KG;QW;SC; SC
     Route: 058
     Dates: start: 20070725, end: 20080707
  2. PEGINTERFERON ALFA-2B (S-P) (PEGINTERFERON ALDA-2B) [Suspect]
     Indication: HEPATITIS C
     Dosage: 0.5 MCG/KG;QW;SC; SC
     Route: 058
     Dates: start: 20080716
  3. KENALOG [Concomitant]
  4. LEVOFLOXACIN [Concomitant]
  5. SELBEX [Concomitant]

REACTIONS (4)
  - ANOREXIA [None]
  - CYSTITIS [None]
  - HEADACHE [None]
  - PYELONEPHRITIS [None]
